FAERS Safety Report 9988056 (Version 1)
Quarter: 2014Q1

REPORT INFORMATION
  Report Type: Spontaneous
  Country: US (occurrence: US)
  Receive Date: 20140308
  Receipt Date: 20140308
  Transmission Date: 20141002
  Serious: Yes (Hospitalization)
  Sender: FDA-Public Use
  Company Number: US-AMGEN-USASP2014015669

PATIENT
  Age: 52 Year
  Sex: Male

DRUGS (4)
  1. ENBREL [Suspect]
     Indication: PSORIATIC ARTHROPATHY
     Dosage: 50 MG, QWK
     Route: 065
     Dates: start: 2000
  2. ENBREL [Suspect]
     Indication: PSORIASIS
  3. REMICADE [Suspect]
     Indication: PRODUCT USED FOR UNKNOWN INDICATION
     Dosage: UNK, HAD A SINGLE DOSE
     Route: 065
     Dates: start: 20140211
  4. SIMPONI [Concomitant]
     Dosage: UNK
     Dates: start: 2012, end: 2013

REACTIONS (10)
  - Nephrolithiasis [Unknown]
  - Arthralgia [Not Recovered/Not Resolved]
  - Vision blurred [Not Recovered/Not Resolved]
  - Headache [Not Recovered/Not Resolved]
  - Stress [Not Recovered/Not Resolved]
  - Abdominal pain [Unknown]
  - Constipation [Unknown]
  - Nausea [Recovered/Resolved]
  - Psoriasis [Not Recovered/Not Resolved]
  - Injection site pain [Not Recovered/Not Resolved]
